FAERS Safety Report 17645665 (Version 2)
Quarter: 2020Q2

REPORT INFORMATION
  Report Type: Spontaneous
  Country: CA (occurrence: CA)
  Receive Date: 20200408
  Receipt Date: 20200408
  Transmission Date: 20200713
  Serious: Yes (Hospitalization, Other)
  Sender: FDA-Public Use
  Company Number: CA-BIOVITRUM-2020CA1655

PATIENT
  Age: 60 Year
  Sex: Female
  Weight: 78 kg

DRUGS (32)
  1. ARAVA [Suspect]
     Active Substance: LEFLUNOMIDE
     Indication: PRODUCT USED FOR UNKNOWN INDICATION
     Route: 048
  2. ANAKINRA [Suspect]
     Active Substance: ANAKINRA
     Indication: RHEUMATOID ARTHRITIS
     Route: 058
  3. AZATHIOPRINE SODIUM. [Suspect]
     Active Substance: AZATHIOPRINE SODIUM
     Indication: RHEUMATOID ARTHRITIS
     Route: 065
  4. ENBREL [Suspect]
     Active Substance: ETANERCEPT
     Indication: RHEUMATOID ARTHRITIS
     Route: 058
  5. ELAVIL [Concomitant]
     Active Substance: AMITRIPTYLINE HYDROCHLORIDE
     Indication: PRODUCT USED FOR UNKNOWN INDICATION
     Route: 065
  6. GOLD [Suspect]
     Active Substance: GOLD
     Indication: RHEUMATOID ARTHRITIS
     Route: 030
  7. LEFLUNOMIDE. [Suspect]
     Active Substance: LEFLUNOMIDE
     Indication: RHEUMATOID ARTHRITIS
     Route: 065
  8. SIMPONI [Suspect]
     Active Substance: GOLIMUMAB
     Indication: PRODUCT USED FOR UNKNOWN INDICATION
     Route: 058
  9. DOCUSATE SODIUM. [Concomitant]
     Active Substance: DOCUSATE SODIUM
     Indication: PRODUCT USED FOR UNKNOWN INDICATION
     Route: 048
  10. TOBRAMYCIN. [Concomitant]
     Active Substance: TOBRAMYCIN
     Indication: PRODUCT USED FOR UNKNOWN INDICATION
     Dosage: 0.3% 4X1 DAILY
     Route: 065
  11. SULFASALAZINE. [Concomitant]
     Active Substance: SULFASALAZINE
     Route: 065
  12. HYDROXYCHLOROQUINE SULFATE. [Suspect]
     Active Substance: HYDROXYCHLOROQUINE SULFATE
     Indication: RHEUMATOID ARTHRITIS
     Route: 065
  13. ORENCIA [Suspect]
     Active Substance: ABATACEPT
     Indication: PRODUCT USED FOR UNKNOWN INDICATION
     Route: 058
  14. APO-LEFLUNOMIDE [Suspect]
     Active Substance: LEFLUNOMIDE
     Indication: RHEUMATOID ARTHRITIS
     Route: 065
  15. PREDNISONE. [Concomitant]
     Active Substance: PREDNISONE
     Indication: PRODUCT USED FOR UNKNOWN INDICATION
     Route: 048
  16. ACTEMRA [Suspect]
     Active Substance: TOCILIZUMAB
     Indication: PRODUCT USED FOR UNKNOWN INDICATION
  17. HYDROXYCHLOROQUINE [Suspect]
     Active Substance: HYDROXYCHLOROQUINE
     Indication: RHEUMATOID ARTHRITIS
     Route: 065
  18. METHOTREXATE. [Suspect]
     Active Substance: METHOTREXATE
     Indication: RHEUMATOID ARTHRITIS
     Route: 058
  19. CYCLOPHOSPHAMIDE. [Concomitant]
     Active Substance: CYCLOPHOSPHAMIDE
     Indication: PRODUCT USED FOR UNKNOWN INDICATION
     Route: 042
  20. DOXYCYCLINE. [Concomitant]
     Active Substance: DOXYCYCLINE
     Indication: PRODUCT USED FOR UNKNOWN INDICATION
     Route: 048
  21. WELLBUTRIN [Concomitant]
     Active Substance: BUPROPION HYDROCHLORIDE
     Indication: PRODUCT USED FOR UNKNOWN INDICATION
     Route: 065
  22. XELJANZ [Concomitant]
     Active Substance: TOFACITINIB CITRATE
     Indication: PRODUCT USED FOR UNKNOWN INDICATION
     Route: 065
  23. AZATHIOPRINE. [Suspect]
     Active Substance: AZATHIOPRINE
     Indication: RHEUMATOID ARTHRITIS
     Route: 065
  24. ETANERCEPT [Suspect]
     Active Substance: ETANERCEPT
     Indication: RHEUMATOID ARTHRITIS
     Route: 058
  25. HUMIRA [Suspect]
     Active Substance: ADALIMUMAB
     Indication: PRODUCT USED FOR UNKNOWN INDICATION
     Route: 058
  26. METHOTREXATE. [Suspect]
     Active Substance: METHOTREXATE
     Indication: PRODUCT USED FOR UNKNOWN INDICATION
     Route: 065
  27. AZATHIOPRINE. [Suspect]
     Active Substance: AZATHIOPRINE
     Indication: PRODUCT USED FOR UNKNOWN INDICATION
     Route: 048
  28. INFLIXIMAB [Suspect]
     Active Substance: INFLIXIMAB
     Indication: RHEUMATOID ARTHRITIS
     Route: 065
  29. PENICILLAMINE [Suspect]
     Active Substance: PENICILLAMINE
     Indication: PRODUCT USED FOR UNKNOWN INDICATION
  30. REMICADE [Suspect]
     Active Substance: INFLIXIMAB
     Indication: RHEUMATOID ARTHRITIS
     Route: 042
  31. RITUXIMAB. [Suspect]
     Active Substance: RITUXIMAB
     Indication: PRODUCT USED FOR UNKNOWN INDICATION
     Route: 042
  32. SULFASALAZINE. [Concomitant]
     Active Substance: SULFASALAZINE
     Indication: PRODUCT USED FOR UNKNOWN INDICATION
     Dosage: 1.5 G 2X1 DAILY
     Route: 048

REACTIONS (20)
  - Drug hypersensitivity [Not Recovered/Not Resolved]
  - Acute kidney injury [Not Recovered/Not Resolved]
  - Anti-neutrophil cytoplasmic antibody positive vasculitis [Not Recovered/Not Resolved]
  - Arthralgia [Not Recovered/Not Resolved]
  - Hypersensitivity [Not Recovered/Not Resolved]
  - Nausea [Not Recovered/Not Resolved]
  - Drug intolerance [Not Recovered/Not Resolved]
  - Chest pain [Not Recovered/Not Resolved]
  - Pain [Not Recovered/Not Resolved]
  - Proteinuria [Not Recovered/Not Resolved]
  - Inflammation [Not Recovered/Not Resolved]
  - Musculoskeletal stiffness [Not Recovered/Not Resolved]
  - Drug ineffective [Not Recovered/Not Resolved]
  - Treatment failure [Not Recovered/Not Resolved]
  - Off label use [Not Recovered/Not Resolved]
  - Joint swelling [Not Recovered/Not Resolved]
  - Headache [Not Recovered/Not Resolved]
  - Diarrhoea [Not Recovered/Not Resolved]
  - Vasculitis [Not Recovered/Not Resolved]
  - Rheumatoid arthritis [Not Recovered/Not Resolved]
